FAERS Safety Report 10152246 (Version 2)
Quarter: 2014Q2

REPORT INFORMATION
  Report Type: Report from Study
  Country: ZA (occurrence: ZA)
  Receive Date: 20140505
  Receipt Date: 20140505
  Transmission Date: 20141212
  Serious: Yes (Death, Hospitalization, Other)
  Sender: FDA-Public Use
  Company Number: PHHY2013ZA056516

PATIENT
  Age: 49 Year
  Sex: Female
  Weight: 46 kg

DRUGS (6)
  1. GLIVEC [Suspect]
     Indication: GASTROINTESTINAL STROMAL TUMOUR
     Dosage: 800 MG, UNK
     Dates: start: 20090901
  2. GLIVEC [Suspect]
     Dosage: 400 MG, UNK
     Dates: end: 20140327
  3. CLEXANE [Concomitant]
     Indication: EMBOLISM VENOUS
     Dosage: 40 MG, UNK
     Dates: start: 201402
  4. PANOCOD [Concomitant]
     Indication: PAIN
     Dosage: 500 MG/ DAILY
  5. MORPHINE [Concomitant]
     Indication: PAIN
     Dosage: 10 MG DAILY
     Dates: start: 201402
  6. SORBITOL [Concomitant]
     Indication: CONSTIPATION
     Dosage: 20 ML, DAILY
     Dates: start: 201402

REACTIONS (10)
  - Death [Fatal]
  - Pulmonary embolism [Unknown]
  - Gastrointestinal stromal tumour [Unknown]
  - Malignant neoplasm progression [Unknown]
  - Deep vein thrombosis [Unknown]
  - Drug intolerance [Unknown]
  - Nausea [Unknown]
  - Vomiting [Unknown]
  - Somnolence [Unknown]
  - Oedema [Unknown]
